FAERS Safety Report 10050243 (Version 1)
Quarter: 2014Q2

REPORT INFORMATION
  Report Type: Spontaneous
  Country: US (occurrence: US)
  Receive Date: 20140401
  Receipt Date: 20140401
  Transmission Date: 20141212
  Serious: Yes (Hospitalization)
  Sender: FDA-Public Use
  Company Number: US-B.I. PHARMACEUTICALS,INC./RIDGEFIELD-2014-BI-13633BP

PATIENT
  Age: 81 Year
  Sex: Male

DRUGS (6)
  1. PRADAXA [Suspect]
     Indication: PRODUCT USED FOR UNKNOWN INDICATION
     Dosage: 150 MG
     Route: 048
     Dates: start: 20111005
  2. SYMBICORT [Concomitant]
     Indication: CHRONIC OBSTRUCTIVE PULMONARY DISEASE
     Route: 065
  3. ALDACTONE [Concomitant]
     Route: 065
  4. COREG [Concomitant]
     Route: 065
  5. GLIPIZIDE [Concomitant]
     Indication: DIABETES MELLITUS
     Route: 065
  6. ALLOPURINOL [Concomitant]
     Indication: GOUT
     Route: 065

REACTIONS (1)
  - Pneumonia [Not Recovered/Not Resolved]
